FAERS Safety Report 4332960-1 (Version None)
Quarter: 2004Q2

REPORT INFORMATION
  Report Type: 
  Country: None (occurrence: None)
  Receive Date: 20040405
  Receipt Date: 20040405
  Transmission Date: 20050107
  Serious: Yes (Life-Threatening, Hospitalization, Other)
  Sender: FDA-Public Use
  Company Number: None

PATIENT
  Age: 42 Year
  Sex: Female
  Weight: 108.8633 kg

DRUGS (8)
  1. CELEXA [Suspect]
     Indication: BIPOLAR DISORDER
     Dosage: 40 MGS A DAY
     Dates: start: 20010301, end: 20030901
  2. NEURONTIN [Suspect]
  3. NEURONTIN [Concomitant]
  4. SEROQUEL [Concomitant]
  5. CLONAZEPAM [Concomitant]
  6. THYROID TAB [Concomitant]
  7. CELEXA [Concomitant]
  8. ... [Concomitant]

REACTIONS (1)
  - DRUG INEFFECTIVE [None]
